FAERS Safety Report 13932067 (Version 2)
Quarter: 2017Q3

REPORT INFORMATION
  Report Type: Spontaneous
  Country: US (occurrence: US)
  Receive Date: 20170904
  Receipt Date: 20170921
  Transmission Date: 20171127
  Serious: No
  Sender: FDA-Public Use
  Company Number: US-PFIZER INC-2017375969

PATIENT
  Age: 57 Year
  Sex: Female

DRUGS (4)
  1. DEPO-ESTRADIOL [Suspect]
     Active Substance: ESTRADIOL CYPIONATE
     Indication: OESTROGEN DEFICIENCY
     Dosage: 2CC INTRAMUSCULAR INJECTION MONTHLY
     Route: 030
  2. PROGESTERONE. [Concomitant]
     Active Substance: PROGESTERONE
     Indication: OESTROGEN DEFICIENCY
     Dosage: 100MG CAPSULE, 1 CAPSULE AT BEDTIME
     Route: 048
     Dates: start: 2014
  3. PROGESTERONE. [Concomitant]
     Active Substance: PROGESTERONE
     Indication: SLEEP DISORDER
  4. DEPO-ESTRADIOL [Suspect]
     Active Substance: ESTRADIOL CYPIONATE
     Indication: OESTRADIOL ABNORMAL

REACTIONS (3)
  - Intentional product misuse [Not Recovered/Not Resolved]
  - Drug ineffective [Not Recovered/Not Resolved]
  - Product quality issue [Not Recovered/Not Resolved]

NARRATIVE: CASE EVENT DATE: 20170804
